FAERS Safety Report 10385039 (Version 1)
Quarter: 2014Q3

REPORT INFORMATION
  Report Type: Spontaneous
  Country: JP (occurrence: JP)
  Receive Date: 20140814
  Receipt Date: 20140814
  Transmission Date: 20150326
  Serious: Yes (Other)
  Sender: FDA-Public Use
  Company Number: PHHY2013JP160794

PATIENT
  Age: 70 Year
  Sex: Female

DRUGS (1)
  1. ZOMETA [Suspect]
     Active Substance: ZOLEDRONIC ACID
     Indication: RENAL CELL CARCINOMA
     Dosage: 3 MG, QMO
     Dates: start: 201005

REACTIONS (2)
  - Inflammation [Unknown]
  - Osteonecrosis of jaw [Unknown]
